FAERS Safety Report 8015778-8 (Version None)
Quarter: 2011Q4

REPORT INFORMATION
  Report Type: 
  Country: None (occurrence: None)
  Receive Date: 20111230
  Receipt Date: 20111007
  Transmission Date: 20120403
  Serious: Yes (Hospitalization, Other)
  Sender: FDA-Public Use
  Company Number: US-ROCHE-1015508

PATIENT
  Sex: Female
  Weight: 59.8 kg

DRUGS (13)
  1. DEXAMETHASONE [Concomitant]
     Route: 048
  2. DECADRON [Concomitant]
     Route: 048
  3. CARBOPLATIN [Suspect]
     Indication: BREAST CANCER METASTATIC
  4. AVASTIN [Suspect]
     Indication: BREAST CANCER METASTATIC
     Dates: start: 20110614, end: 20110916
  5. LEVOTHYROXINE SODIUM [Concomitant]
     Route: 048
  6. COMPAZINE [Concomitant]
     Dosage: TOTAL 60 TABLETS
  7. LORAZEPAM [Concomitant]
     Indication: NAUSEA
     Route: 048
  8. VICODIN [Concomitant]
     Route: 048
  9. LORAZEPAM [Concomitant]
     Indication: ANXIETY
  10. LORAZEPAM [Concomitant]
     Indication: INSOMNIA
  11. LEVOTHROID [Concomitant]
     Route: 048
  12. NEULASTA [Concomitant]
     Route: 058
  13. HERCEPTIN [Suspect]
     Indication: BREAST CANCER METASTATIC

REACTIONS (1)
  - PNEUMOTHORAX [None]
